FAERS Safety Report 9380750 (Version 4)
Quarter: 2013Q3

REPORT INFORMATION
  Report Type: Spontaneous
  Country: DE (occurrence: DE)
  Receive Date: 20130702
  Receipt Date: 20130812
  Transmission Date: 20140515
  Serious: Yes (Hospitalization, Other)
  Sender: FDA-Public Use
  Company Number: DE-BAXTER-2013BAX013680

PATIENT
  Age: 75 Year
  Sex: Male
  Weight: 93 kg

DRUGS (35)
  1. KIOVIG (10 G/100 ML) [Suspect]
     Indication: PARANEOPLASTIC PEMPHIGUS
     Route: 042
     Dates: start: 20120810
  2. KIOVIG (10 G/100 ML) [Suspect]
     Indication: OFF LABEL USE
     Route: 042
     Dates: start: 201011
  3. KIOVIG (20 G/200 ML) [Suspect]
     Indication: PARANEOPLASTIC PEMPHIGUS
     Route: 042
     Dates: start: 20120206
  4. KIOVIG (20 G/200 ML) [Suspect]
     Indication: OFF LABEL USE
     Route: 042
     Dates: start: 20120207
  5. KIOVIG (20 G/200 ML) [Suspect]
     Route: 042
     Dates: start: 20120208
  6. KIOVIG (20 G/200 ML) [Suspect]
     Route: 042
     Dates: start: 20120209
  7. KIOVIG (20 G/200 ML) [Suspect]
     Route: 042
     Dates: start: 20120213
  8. KIOVIG (20 G/200 ML) [Suspect]
     Route: 042
     Dates: start: 20120213
  9. KIOVIG (20 G/200 ML) [Suspect]
     Route: 042
     Dates: start: 20120806
  10. KIOVIG (20 G/200 ML) [Suspect]
     Route: 042
     Dates: start: 20120806
  11. KIOVIG (20 G/200 ML) [Suspect]
     Route: 042
     Dates: start: 20120807
  12. KIOVIG (20 G/200 ML) [Suspect]
     Route: 042
     Dates: start: 20120809
  13. KIOVIG (20 G/200 ML) [Suspect]
     Route: 042
     Dates: start: 20120814
  14. KIOVIG (20 G/200 ML) [Suspect]
     Route: 042
     Dates: start: 20120814
  15. KIOVIG (20 G/200 ML) [Suspect]
     Route: 042
     Dates: start: 201011
  16. KIOVIG (20 G/200 ML) [Suspect]
     Route: 042
  17. DEXAMETHASON [Suspect]
     Indication: DERMATITIS BULLOUS
     Route: 065
  18. DEXAMETHASON [Suspect]
     Indication: MYELODYSPLASTIC SYNDROME
  19. PREDNISOLON [Concomitant]
     Indication: PRODUCT USED FOR UNKNOWN INDICATION
     Route: 048
  20. DEKRISTOL [Concomitant]
     Indication: PRODUCT USED FOR UNKNOWN INDICATION
     Dosage: 20,000
     Route: 048
  21. SPIRONOLACTON [Concomitant]
     Indication: PRODUCT USED FOR UNKNOWN INDICATION
     Route: 048
  22. TOREM [Concomitant]
     Indication: PRODUCT USED FOR UNKNOWN INDICATION
     Dosage: 1 TAB
     Route: 048
  23. TOREM [Concomitant]
     Dosage: 0.5 TAB
     Route: 048
  24. ACICLOVIR [Concomitant]
     Indication: PRODUCT USED FOR UNKNOWN INDICATION
     Route: 048
  25. ACTRAPID [Concomitant]
     Indication: PRODUCT USED FOR UNKNOWN INDICATION
     Dosage: 25
     Route: 058
  26. ACTRAPID [Concomitant]
     Dosage: 20
     Route: 058
  27. ACTRAPID [Concomitant]
     Dosage: 20
     Route: 058
  28. PROTAPHANE [Concomitant]
     Indication: PRODUCT USED FOR UNKNOWN INDICATION
     Dosage: 20
     Route: 058
  29. ALENDRO KSK [Concomitant]
     Indication: PRODUCT USED FOR UNKNOWN INDICATION
     Route: 048
  30. PANTOPRA Q [Concomitant]
     Indication: PRODUCT USED FOR UNKNOWN INDICATION
     Route: 048
  31. FLUCONAZOL ARISTO KAPSELN [Concomitant]
     Indication: PRODUCT USED FOR UNKNOWN INDICATION
     Route: 048
  32. ATACAND CC PHARMA [Concomitant]
     Indication: PRODUCT USED FOR UNKNOWN INDICATION
     Dosage: 0.5 TAB IN THE AM AND 0.5 TAB AT PM
     Route: 048
  33. BELOC-ZOK [Concomitant]
     Indication: PRODUCT USED FOR UNKNOWN INDICATION
     Dosage: 0.5 TAB IN THE AM
     Route: 048
  34. AMLODIPIN 1A PHARMA [Concomitant]
     Indication: PRODUCT USED FOR UNKNOWN INDICATION
     Route: 048
  35. MOXONIDIN [Concomitant]
     Indication: PRODUCT USED FOR UNKNOWN INDICATION
     Route: 048

REACTIONS (11)
  - Atrial fibrillation [Recovered/Resolved]
  - Atrial fibrillation [Recovered/Resolved]
  - Muscle haemorrhage [Recovered/Resolved]
  - Oedema peripheral [Recovered/Resolved]
  - Pain in extremity [Recovered/Resolved]
  - Pancytopenia [Recovered/Resolved]
  - Organising pneumonia [Recovered/Resolved]
  - Nocturia [Recovered/Resolved]
  - Hypokalaemia [Recovered/Resolved]
  - Dyspnoea [Recovered/Resolved]
  - Fatigue [Recovered/Resolved]
